FAERS Safety Report 7945630-5 (Version None)
Quarter: 2011Q4

REPORT INFORMATION
  Report Type: 
  Country: None (occurrence: None)
  Receive Date: 20111123
  Receipt Date: 20111103
  Transmission Date: 20120403
  Serious: Yes (Life-Threatening)
  Sender: FDA-Public Use
  Company Number: FR-REGULIS-0026

PATIENT
  Age: 24 Year
  Sex: Female

DRUGS (12)
  1. PRIMAXIN [Suspect]
     Indication: PYREXIA
     Route: 042
     Dates: start: 20111002
  2. FOSCAVIR [Suspect]
     Indication: CYTOMEGALOVIRUS INFECTION
     Dosage: 5400, MG MILLIGRAM(S), 2, 1, DAYS
     Route: 042
     Dates: start: 20110903, end: 20110909
  3. CANCIDAS: / CASPOFUNGINE [Concomitant]
  4. AMIKACIN [Suspect]
     Indication: PYREXIA
     Route: 042
     Dates: start: 20110909
  5. TAZOCILLINE: / PIPERACILLIN [Suspect]
     Indication: PYREXIA
     Dosage: 4, G GRAM(S), 3, 1, DAYS
     Route: 042
     Dates: start: 20110825, end: 20110904
  6. PRIMAXIN [Suspect]
     Indication: PYREXIA
     Dosage: 500, MG MILLIGRAM(S), 3, 1, DAYS
     Route: 042
     Dates: start: 20110909, end: 20110918
  7. AZATHIOPRINE [Concomitant]
  8. VANCOMYCIN [Suspect]
     Indication: PYREXIA
     Dosage: 2, G GRAM(S), 1, 1, DAYS
     Route: 042
     Dates: start: 20110909, end: 20110913
  9. AMIKACIN [Suspect]
     Indication: PYREXIA
     Route: 042
     Dates: start: 20110825, end: 20110828
  10. TAZOCILLINE: / PIPERACILLIN [Suspect]
     Indication: PYREXIA
     Route: 042
     Dates: end: 20111002
  11. FOSCAVIR [Suspect]
     Indication: CYTOMEGALOVIRUS INFECTION
     Route: 042
     Dates: start: 20110930
  12. CYMEVAN: / GANICLOVIR [Suspect]
     Indication: CYTOMEGALOVIRUS INFECTION
     Dosage: 285, MG MILLIGRAM(S), 2, 1, DAYS
     Route: 042
     Dates: start: 20110830, end: 20110916

REACTIONS (10)
  - RED BLOOD CELL COUNT DECREASED [None]
  - PANCYTOPENIA [None]
  - CYTOLYTIC HEPATITIS [None]
  - ACUTE RESPIRATORY DISTRESS SYNDROME [None]
  - SEPTIC SHOCK [None]
  - CONDITION AGGRAVATED [None]
  - DIARRHOEA [None]
  - HEPATIC FUNCTION ABNORMAL [None]
  - RENAL FAILURE [None]
  - HAEMORRHAGE [None]
